FAERS Safety Report 5567939-5 (Version None)
Quarter: 2007Q4

REPORT INFORMATION
  Report Type: 
  Country: None (occurrence: None)
  Receive Date: 20071218
  Receipt Date: 20071218
  Transmission Date: 20080405
  Serious: No
  Sender: FDA-Public Use
  Company Number: None

PATIENT
  Age: 51 Year
  Sex: Male
  Weight: 79.3795 kg

DRUGS (6)
  1. LITHIUM [Suspect]
     Dosage: 300MG BID PO
     Route: 048
  2. CYCLOBENZAPRINE HCL [Concomitant]
  3. COLCHICINE [Concomitant]
  4. CLONAZEPAM [Concomitant]
  5. BENZTROPINE [Concomitant]
  6. LITHOBID [Concomitant]

REACTIONS (1)
  - THERAPEUTIC AGENT TOXICITY [None]
